FAERS Safety Report 25244034 (Version 1)
Quarter: 2025Q2

REPORT INFORMATION
  Report Type: Report from Study
  Country: CH (occurrence: CH)
  Receive Date: 20250428
  Receipt Date: 20250428
  Transmission Date: 20250717
  Serious: Yes (Other)
  Sender: ROCHE
  Company Number: CH-ROCHE-10000267584

PATIENT

DRUGS (1)
  1. FARICIMAB [Suspect]
     Active Substance: FARICIMAB
     Indication: Neovascular age-related macular degeneration
     Route: 050

REACTIONS (11)
  - Iridocyclitis [Unknown]
  - Uveitis [Unknown]
  - Endophthalmitis [Unknown]
  - Acute coronary syndrome [Unknown]
  - Anterior chamber cell [Unknown]
  - Fibrosis [Unknown]
  - Optic ischaemic neuropathy [Unknown]
  - Intraocular pressure increased [Unknown]
  - Retinal pigment epithelial tear [Unknown]
  - Retinal haemorrhage [Unknown]
  - Vitreoretinal traction syndrome [Unknown]
